FAERS Safety Report 5807543-4 (Version None)
Quarter: 2008Q3

REPORT INFORMATION
  Report Type: 
  Country: None (occurrence: None)
  Receive Date: 20080711
  Receipt Date: 20080428
  Transmission Date: 20090109
  Serious: Yes (Hospitalization, Other)
  Sender: FDA-Public Use
  Company Number: US-ROCHE-561689

PATIENT
  Age: 56 Year
  Sex: Male

DRUGS (4)
  1. SAQUINAVIR [Suspect]
     Indication: ANTIRETROVIRAL THERAPY
     Route: 065
     Dates: end: 20050101
  2. NORVIR [Suspect]
     Indication: ANTIRETROVIRAL THERAPY
     Route: 065
     Dates: end: 20050101
  3. STAVUDINE [Suspect]
     Indication: ANTIRETROVIRAL THERAPY
     Route: 065
     Dates: end: 20050101
  4. ABACAVIR [Suspect]
     Indication: ANTIRETROVIRAL THERAPY
     Route: 065
     Dates: end: 20050101

REACTIONS (11)
  - ASTHENIA [None]
  - CHOROIDITIS [None]
  - DISORIENTATION [None]
  - DIZZINESS [None]
  - GAIT DISTURBANCE [None]
  - HAEMOLYTIC ANAEMIA [None]
  - HEADACHE [None]
  - MENINGITIS CRYPTOCOCCAL [None]
  - NAUSEA [None]
  - NEPHROPATHY TOXIC [None]
  - THROMBOCYTOPENIA [None]
